FAERS Safety Report 10701646 (Version 1)
Quarter: 2015Q1

REPORT INFORMATION
  Report Type: Spontaneous
  Country: US (occurrence: US)
  Receive Date: 20150109
  Receipt Date: 20150109
  Transmission Date: 20150721
  Serious: No
  Sender: FDA-Public Use
  Company Number: US-PFIZER INC-2015006736

PATIENT
  Age: 72 Year
  Sex: Male
  Weight: 76.64 kg

DRUGS (2)
  1. CHANTIX [Suspect]
     Active Substance: VARENICLINE TARTRATE
     Indication: SMOKING CESSATION THERAPY
     Dosage: 2 MG (1 MG TABLET, 2 TABLETS A DAY), DAILY
     Dates: start: 201411
  2. CHANTIX [Suspect]
     Active Substance: VARENICLINE TARTRATE
     Dosage: 1 MG (ONE 1 MG TABLET A DAY), DAILY
     Dates: end: 201412

REACTIONS (2)
  - Drug ineffective [Not Recovered/Not Resolved]
  - Abnormal dreams [Unknown]

NARRATIVE: CASE EVENT DATE: 2014
